FAERS Safety Report 16682579 (Version 2)
Quarter: 2019Q3

REPORT INFORMATION
  Report Type: Spontaneous
  Country: BR (occurrence: BR)
  Receive Date: 20190808
  Receipt Date: 20190822
  Transmission Date: 20191004
  Serious: Yes (Other)
  Sender: FDA-Public Use
  Company Number: BR-ABBVIE-19P-020-2877207-00

PATIENT
  Sex: Female

DRUGS (1)
  1. DEPAKENE [Suspect]
     Active Substance: VALPROIC ACID
     Indication: SEIZURE
     Dosage: DAILY DOSE: 500MG; MORNING/NIGHT
     Route: 048

REACTIONS (5)
  - Enuresis [Not Recovered/Not Resolved]
  - Hysterectomy [Recovered/Resolved]
  - Urinary incontinence [Unknown]
  - Pollakiuria [Not Recovered/Not Resolved]
  - Bladder operation [Recovered/Resolved]

NARRATIVE: CASE EVENT DATE: 2016
